FAERS Safety Report 17350239 (Version 1)
Quarter: 2020Q1

REPORT INFORMATION
  Report Type: Spontaneous
  Country: DE (occurrence: DE)
  Receive Date: 20200130
  Receipt Date: 20200130
  Transmission Date: 20200409
  Serious: Yes (Other)
  Sender: FDA-Public Use
  Company Number: DE-TEVA-2020-DE-1175167

PATIENT
  Sex: Female

DRUGS (8)
  1. SPIRONOLACTONE. [Suspect]
     Active Substance: SPIRONOLACTONE
     Indication: MUSCLE OEDEMA
     Route: 048
  2. POTASSIUM CHLORIDE. [Suspect]
     Active Substance: POTASSIUM CHLORIDE
     Indication: FAMILIAL PERIODIC PARALYSIS
     Dosage: 1200 MILLIGRAM DAILY;
     Route: 048
  3. POTASSIUM CHLORIDE. [Suspect]
     Active Substance: POTASSIUM CHLORIDE
     Dosage: RECEIVED DURING PREGNANCY
     Route: 048
  4. SPIRONOLACTONE. [Suspect]
     Active Substance: SPIRONOLACTONE
     Indication: FAMILIAL PERIODIC PARALYSIS
     Dosage: 100 MILLIGRAM DAILY;
     Route: 042
  5. SPIRONOLACTONE. [Suspect]
     Active Substance: SPIRONOLACTONE
     Dosage: ONCE INCREASED THE DOSE BY HER OWN
     Route: 048
  6. POTASSIUM CHLORIDE. [Suspect]
     Active Substance: POTASSIUM CHLORIDE
     Indication: MUSCLE OEDEMA
     Dosage: ONCE INCREASED THE DOSE BY HER OWN
     Route: 048
  7. SPIRONOLACTONE. [Suspect]
     Active Substance: SPIRONOLACTONE
     Dosage: 50 MILLIGRAM DAILY; RECEIVED DURING PREGNANCY
     Route: 048
  8. DESOGESTREL [Concomitant]
     Active Substance: DESOGESTREL
     Dosage: MINI PILL
     Route: 065

REACTIONS (5)
  - Maternal exposure during pregnancy [Unknown]
  - Asthenia [Recovered/Resolved]
  - Alopecia [Recovered/Resolved]
  - Arrhythmia [Recovered/Resolved]
  - Normal newborn [Unknown]
